FAERS Safety Report 20618045 (Version 1)
Quarter: 2022Q1

REPORT INFORMATION
  Report Type: Spontaneous
  Country: US (occurrence: None)
  Receive Date: 20220321
  Receipt Date: 20220321
  Transmission Date: 20220423
  Serious: Yes (Life-Threatening)
  Sender: FDA-Public Use
  Company Number: None

PATIENT
  Age: 62 Year
  Sex: Female

DRUGS (11)
  1. ANORO ELLIPTA [Suspect]
     Active Substance: UMECLIDINIUM BROMIDE\VILANTEROL TRIFENATATE
     Indication: Bronchitis
     Dosage: OTHER QUANTITY : 1 PUFF(S);?FREQUENCY : DAILY;?
     Route: 055
     Dates: start: 20211004, end: 20211113
  2. ANORO ELLIPTA [Suspect]
     Active Substance: UMECLIDINIUM BROMIDE\VILANTEROL TRIFENATATE
     Indication: Asthma
  3. ANORO ELLIPTA [Suspect]
     Active Substance: UMECLIDINIUM BROMIDE\VILANTEROL TRIFENATATE
     Indication: Nephrogenic systemic fibrosis
  4. LOSARTAN [Concomitant]
     Active Substance: LOSARTAN
  5. ALBUTEROL [Concomitant]
     Active Substance: ALBUTEROL
  6. ALBUTEROL NEBS [Concomitant]
  7. XANAX [Concomitant]
     Active Substance: ALPRAZOLAM
  8. BENADRYL [Concomitant]
     Active Substance: DIPHENHYDRAMINE HYDROCHLORIDE
  9. PREDNISONE [Concomitant]
     Active Substance: PREDNISONE
  10. TUMS [Concomitant]
     Active Substance: CALCIUM CARBONATE
  11. PEPCID [Concomitant]
     Active Substance: FAMOTIDINE

REACTIONS (3)
  - Heart rate increased [None]
  - Restlessness [None]
  - Therapy cessation [None]

NARRATIVE: CASE EVENT DATE: 20190718
